FAERS Safety Report 19956507 (Version 1)
Quarter: 2021Q4

REPORT INFORMATION
  Report Type: Spontaneous
  Country: US (occurrence: US)
  Receive Date: 20211014
  Receipt Date: 20211014
  Transmission Date: 20220303
  Serious: Yes (Other)
  Sender: FDA-Public Use
  Company Number: US-TEVA-2021-US-1948769

PATIENT
  Age: 76 Year
  Sex: Female

DRUGS (1)
  1. URSODIOL [Suspect]
     Active Substance: URSODIOL
     Indication: Primary biliary cholangitis
     Dosage: FOUR-300 MG OF URSO DAILY
     Route: 065
     Dates: end: 202108

REACTIONS (2)
  - Liver injury [Unknown]
  - Contraindicated product prescribed [Unknown]
